FAERS Safety Report 7084296-6 (Version None)
Quarter: 2010Q4

REPORT INFORMATION
  Report Type: 
  Country: None (occurrence: None)
  Receive Date: 20101104
  Receipt Date: 20101027
  Transmission Date: 20110411
  Serious: Yes (Other)
  Sender: FDA-Public Use
  Company Number: US-PFIZER INC-2010139939

PATIENT
  Age: 47 Year
  Sex: Female

DRUGS (9)
  1. SUTENT [Suspect]
     Indication: BREAST CANCER
     Dosage: 37.5 MG, CYCLIC, 28 DAYS ON, 14 DAYS OFF
     Dates: start: 20100830
  2. DEXAMETHASONE [Concomitant]
     Dosage: 1 MG, UNK
  3. COLACE [Concomitant]
     Dosage: 100 MG, 2X/DAY
  4. PEPCID [Concomitant]
     Dosage: 20 MG, 2X/DAY
  5. KEPPRA [Concomitant]
     Dosage: 500 MG, 2X/DAY, FOR 3 DAYS
  6. KEPPRA [Concomitant]
     Dosage: 1000 MG, 2X/DAY
  7. CALCIUM WITH VITAMIN D [Concomitant]
     Dosage: 1 DF, 1X/DAY
  8. PERCOCET [Concomitant]
     Dosage: UNK
  9. GLUCOSAMINE HYDROCHLORIDE/CHONDROITIN SULFATE [Concomitant]

REACTIONS (1)
  - INTERSTITIAL LUNG DISEASE [None]
